FAERS Safety Report 9860070 (Version 3)
Quarter: 2014Q2

REPORT INFORMATION
  Report Type: Report from Study
  Country: PE (occurrence: PE)
  Receive Date: 20140131
  Receipt Date: 20140429
  Transmission Date: 20141212
  Serious: No
  Sender: FDA-Public Use
  Company Number: PE-ROCHE-1242997

PATIENT
  Age: 62 Year
  Sex: Female

DRUGS (2)
  1. ACTEMRA [Suspect]
     Indication: RHEUMATOID ARTHRITIS
     Route: 042
     Dates: start: 20091016, end: 201312
  2. ACTEMRA [Suspect]
     Dosage: LAST DOSE RECEIVED ON 18/FEB/2014.
     Route: 042

REACTIONS (9)
  - Sjogren^s syndrome [Unknown]
  - Bronchitis [Recovered/Resolved]
  - Pharyngitis [Recovered/Resolved]
  - Oropharyngeal pain [Recovered/Resolved]
  - Chest pain [Recovered/Resolved]
  - Cough [Recovered/Resolved]
  - Productive cough [Not Recovered/Not Resolved]
  - Infection [Recovered/Resolved]
  - Gastritis [Not Recovered/Not Resolved]
